FAERS Safety Report 4438419-5 (Version None)
Quarter: 2004Q3

REPORT INFORMATION
  Report Type: 
  Country: None (occurrence: None)
  Receive Date: 20040831
  Receipt Date: 20040330
  Transmission Date: 20050211
  Serious: Yes (Other)
  Sender: FDA-Public Use
  Company Number: PHHO2004CA04934

PATIENT
  Sex: Male

DRUGS (7)
  1. CLOZARIL [Suspect]
     Indication: SCHIZOPHRENIA
     Route: 048
     Dates: start: 20020507
  2. PROZAC [Concomitant]
  3. CLONAZEPAM [Concomitant]
     Dosage: 1 MG, UNK
  4. LORAZEPAM [Concomitant]
     Dosage: 1 MG + 2 MG
  5. NOZINAN                                 /NET/ [Concomitant]
     Dosage: 25 MG, UNK
  6. TRAZODONE [Concomitant]
     Dosage: 100 MG, UNK
  7. ZOLOFT [Concomitant]
     Dosage: 50 MG, UNK

REACTIONS (2)
  - HEPATITIS C [None]
  - WHITE BLOOD CELL COUNT DECREASED [None]
